FAERS Safety Report 24439574 (Version 1)
Quarter: 2024Q4

REPORT INFORMATION
  Report Type: Spontaneous
  Country: IT (occurrence: IT)
  Receive Date: 20241015
  Receipt Date: 20241015
  Transmission Date: 20250114
  Serious: Yes (Other)
  Sender: NOVARTIS
  Company Number: None

PATIENT
  Age: 90 Year
  Sex: Male
  Weight: 62 kg

DRUGS (2)
  1. MEKINIST [Suspect]
     Active Substance: TRAMETINIB DIMETHYL SULFOXIDE
     Indication: Metastatic malignant melanoma
     Dosage: 2 MG (2MGIL FARMACO ? STATO TEMPORANEAMENTE SOSPESO PER 11 GIORNI POI RIPRESO A DOSE RIDOTTA A 1MG)
     Route: 048
     Dates: start: 20240917
  2. TAFINLAR [Suspect]
     Active Substance: DABRAFENIB MESYLATE
     Indication: Metastatic malignant melanoma
     Dosage: 100 MG (100MG BIDIL FARMACO ? STATO TEMPORANEAMENTE SOSPESO PER 11 GIORNI POI RIPRESO A DOSE RIDOTTA
     Route: 048
     Dates: start: 20240917

REACTIONS (1)
  - Bradycardia [Recovered/Resolved]

NARRATIVE: CASE EVENT DATE: 20240925
